FAERS Safety Report 10788552 (Version 3)
Quarter: 2018Q1

REPORT INFORMATION
  Report Type: Report from Study
  Country: IT (occurrence: IT)
  Receive Date: 20150212
  Receipt Date: 20180221
  Transmission Date: 20180508
  Serious: Yes (Hospitalization)
  Sender: FDA-Public Use
  Company Number: IT-ROCHE-1064184

PATIENT
  Age: 61 Year
  Sex: Male
  Weight: 56 kg

DRUGS (18)
  1. MEGACE [Concomitant]
     Active Substance: MEGESTROL ACETATE
     Indication: WEIGHT DECREASED
     Route: 065
     Dates: start: 20120708, end: 20120814
  2. CYCLOPHOSPHAMIDE. [Suspect]
     Active Substance: CYCLOPHOSPHAMIDE
     Indication: DIFFUSE LARGE B-CELL LYMPHOMA
     Dosage: DAY 1 OF EACH 21 DAY CYCLE ?MOST RECENT DOSE PRIOR TO SAE 17/APR/2012. LAST DOSE TAKEN 1245MG.?MOST
     Route: 042
     Dates: start: 20120327
  3. PREDNISONE. [Suspect]
     Active Substance: PREDNISONE
     Indication: DIFFUSE LARGE B-CELL LYMPHOMA
     Dosage: DAY 1-5 OF EACH CYCLE (100 MG/DAY) EVERY 3 WEEKS, FOR 6 OR 8 CYCLES?MOST RECENT DOSE PRIOR TO SAE 21
     Route: 048
     Dates: start: 20120327
  4. LATTULOSIO [Concomitant]
     Indication: CONSTIPATION
     Route: 065
     Dates: start: 20120331, end: 20170403
  5. LOPERAMIDE [Concomitant]
     Active Substance: LOPERAMIDE
     Indication: DIARRHOEA
     Route: 065
     Dates: start: 20120426, end: 20120430
  6. PARACETAMOL [Concomitant]
     Active Substance: ACETAMINOPHEN
     Indication: PREMEDICATION
     Route: 065
     Dates: start: 20120327, end: 20120904
  7. CODEINA [Concomitant]
     Active Substance: CODEINE
     Indication: CONSTIPATION
     Route: 065
     Dates: start: 20120331
  8. LAMIVUDINA [Concomitant]
     Active Substance: LAMIVUDINE
     Indication: PROPHYLAXIS
     Route: 065
     Dates: start: 20120327, end: 20131014
  9. CHLORPHENAMINE [Concomitant]
     Active Substance: CHLORPHENIRAMINE MALEATE
     Indication: PREMEDICATION
     Route: 065
     Dates: start: 20120327, end: 20120904
  10. METOCLOPRAMIDE. [Concomitant]
     Active Substance: METOCLOPRAMIDE
     Indication: VOMITING
  11. ALLOPURINOL. [Concomitant]
     Active Substance: ALLOPURINOL
     Indication: PREMEDICATION
     Route: 065
     Dates: start: 20120327, end: 20120904
  12. PARACETAMOL [Concomitant]
     Active Substance: ACETAMINOPHEN
     Indication: ABDOMINAL PAIN
     Route: 065
     Dates: start: 20120323, end: 2012
  13. OBINUTUZUMAB. [Suspect]
     Active Substance: OBINUTUZUMAB
     Indication: DIFFUSE LARGE B-CELL LYMPHOMA
     Dosage: ON DAY 1 OF EACH 21-DAY CYCLE FOR 8 CYCLES. DURING CYCLE 1, OBINUTUZUMAB WAS ALSO INFUSED ON DAYS 8
     Route: 042
     Dates: start: 20120327
  14. DOXORUBICIN [Suspect]
     Active Substance: DOXORUBICIN
     Indication: DIFFUSE LARGE B-CELL LYMPHOMA
     Dosage: DAY 1 OF EACH 21 DAY CYCLE ?MOST RECENT DOSE PRIOR TO SAE 17/APR/2012. LAST DOSE TAKEN 83MG.?MOST RE
     Route: 042
     Dates: start: 20120327
  15. CODEINA [Concomitant]
     Active Substance: CODEINE
     Indication: ABDOMINAL PAIN
     Route: 065
     Dates: start: 20120323, end: 2012
  16. METOCLOPRAMIDE. [Concomitant]
     Active Substance: METOCLOPRAMIDE
     Indication: NAUSEA
     Route: 065
     Dates: start: 20120331, end: 20120417
  17. ZOFRAN [Concomitant]
     Active Substance: ONDANSETRON HYDROCHLORIDE
     Indication: PREMEDICATION
     Route: 065
     Dates: start: 20120327, end: 20120724
  18. VINCRISTINE [Suspect]
     Active Substance: VINCRISTINE
     Indication: DIFFUSE LARGE B-CELL LYMPHOMA
     Dosage: 1.4 TO 2.0 MG/M2 EVERY 3 WEEKS DAY 1 OF EACH 21 DAY CYCLE ?MOST RECENT DOSE PRIOR TO SAE 17/APR/2012
     Route: 042
     Dates: start: 20120327

REACTIONS (1)
  - Febrile neutropenia [Recovered/Resolved]

NARRATIVE: CASE EVENT DATE: 20120426
